FAERS Safety Report 23902865 (Version 1)
Quarter: 2024Q2

REPORT INFORMATION
  Report Type: Spontaneous
  Country: US (occurrence: US)
  Receive Date: 20240527
  Receipt Date: 20240527
  Transmission Date: 20240716
  Serious: No
  Sender: FDA-Public Use
  Company Number: US-TEVA-VS-3198236

PATIENT
  Age: 67 Year
  Sex: Female

DRUGS (1)
  1. NORTRIPTYLINE HYDROCHLORIDE [Suspect]
     Active Substance: NORTRIPTYLINE HYDROCHLORIDE
     Indication: Product used for unknown indication
     Route: 065

REACTIONS (5)
  - Hypersensitivity [Unknown]
  - Digestive enzyme abnormal [Unknown]
  - Dry mouth [Unknown]
  - Inflammation [Unknown]
  - Exposure to allergen [Unknown]
